FAERS Safety Report 4776449-4 (Version None)
Quarter: 2005Q3

REPORT INFORMATION
  Report Type: 
  Country: None (occurrence: None)
  Receive Date: 20050922
  Receipt Date: 20050126
  Transmission Date: 20060218
  Serious: Yes (Disabling)
  Sender: FDA-Public Use
  Company Number: US-MERCK-0501USA04297

PATIENT
  Age: 39 Year
  Sex: Male
  Weight: 70 kg

DRUGS (3)
  1. VIOXX [Suspect]
     Indication: GOUT
     Route: 048
     Dates: start: 20040201
  2. VIOXX [Suspect]
     Route: 048
     Dates: start: 20020201
  3. VIOXX [Suspect]
     Route: 048
     Dates: start: 20040201

REACTIONS (1)
  - THROMBOSIS [None]
